FAERS Safety Report 25979875 (Version 1)
Quarter: 2025Q4

REPORT INFORMATION
  Report Type: Spontaneous
  Country: US (occurrence: US)
  Receive Date: 20251030
  Receipt Date: 20251030
  Transmission Date: 20260118
  Serious: No
  Sender: MELINTA THERAPEUTICS
  Company Number: US-MELINTA THERAPEUTICS, LLC-US-MLNT-25-00005

PATIENT
  Age: 62 Year
  Sex: Female

DRUGS (1)
  1. KIMYRSA [Suspect]
     Active Substance: ORITAVANCIN DIPHOSPHATE
     Indication: Product used for unknown indication
     Dosage: UNK, SINGLE
     Route: 041

REACTIONS (3)
  - Cyanosis [Unknown]
  - Peripheral coldness [Unknown]
  - Chills [Unknown]
